FAERS Safety Report 13824463 (Version 1)
Quarter: 2017Q3

REPORT INFORMATION
  Report Type: Report from Study
  Country: US (occurrence: US)
  Receive Date: 20170802
  Receipt Date: 20170802
  Transmission Date: 20171127
  Serious: Yes (Hospitalization, Other)
  Sender: FDA-Public Use
  Company Number: US-ASTELLAS-2017US028013

PATIENT
  Age: 72 Year
  Sex: Female

DRUGS (2)
  1. ERLOTINIB [Suspect]
     Active Substance: ERLOTINIB
     Indication: LUNG NEOPLASM MALIGNANT
     Route: 048
     Dates: start: 201701
  2. LOSARTAN AND HYDROCHLOROTHIAZIDE [Concomitant]
     Active Substance: HYDROCHLOROTHIAZIDE\LOSARTAN POTASSIUM
     Indication: BLOOD PRESSURE MEASUREMENT
     Dosage: 100/25 MG (SHE ONLY TAKES 1/2 TABLET A DAY) , ONCE DAILY
     Route: 048

REACTIONS (18)
  - Cardiac disorder [Recovered/Resolved with Sequelae]
  - Diarrhoea [Recovered/Resolved with Sequelae]
  - Ageusia [Not Recovered/Not Resolved]
  - Rash [Recovered/Resolved with Sequelae]
  - Pyrexia [Recovered/Resolved]
  - Pulmonary thrombosis [Unknown]
  - Weight increased [Unknown]
  - Dry skin [Recovered/Resolved with Sequelae]
  - Growth of eyelashes [Not Recovered/Not Resolved]
  - Sepsis [Recovered/Resolved]
  - Hyperphagia [Unknown]
  - Amnesia [Not Recovered/Not Resolved]
  - Skin exfoliation [Recovered/Resolved with Sequelae]
  - Body height decreased [Unknown]
  - Hair growth abnormal [Not Recovered/Not Resolved]
  - Memory impairment [Not Recovered/Not Resolved]
  - Kidney infection [Recovered/Resolved]
  - Decreased appetite [Not Recovered/Not Resolved]

NARRATIVE: CASE EVENT DATE: 2017
